FAERS Safety Report 21065533 (Version 1)
Quarter: 2022Q3

REPORT INFORMATION
  Report Type: Spontaneous
  Country: US (occurrence: None)
  Receive Date: 20220711
  Receipt Date: 20220711
  Transmission Date: 20221027
  Serious: Yes (Hospitalization)
  Sender: FDA-Public Use
  Company Number: US-FARMAPROD-202206-1203

PATIENT
  Sex: Male

DRUGS (18)
  1. OXERVATE [Suspect]
     Active Substance: CENEGERMIN-BKBJ
     Indication: Neurotrophic keratopathy
     Route: 047
     Dates: start: 20220606
  2. SUCRALFATE [Concomitant]
     Active Substance: SUCRALFATE
  3. RANITIDINE [Concomitant]
     Active Substance: RANITIDINE
  4. POTASSIUM CHLORIDE [Concomitant]
     Active Substance: POTASSIUM CHLORIDE
  5. OXYCODONE [Concomitant]
     Active Substance: OXYCODONE
  6. POLYVINYL ALCOHOL [Concomitant]
     Active Substance: POLYVINYL ALCOHOL
  7. OMEPRAZOLE [Concomitant]
     Active Substance: OMEPRAZOLE
  8. TOPIRAMATE [Concomitant]
     Active Substance: TOPIRAMATE
  9. METHYLPREDNISOLONE [Concomitant]
     Active Substance: METHYLPREDNISOLONE
  10. LORATADINE [Concomitant]
     Active Substance: LORATADINE
  11. LIDOCAINE [Concomitant]
     Active Substance: LIDOCAINE
  12. HYDROXYZINE [Concomitant]
     Active Substance: HYDROXYZINE HYDROCHLORIDE
  13. GABAPENTIN [Concomitant]
     Active Substance: GABAPENTIN
  14. FERROUS SULFATE [Concomitant]
     Active Substance: FERROUS SULFATE
  15. BACLOFEN [Concomitant]
     Active Substance: BACLOFEN
  16. ALBUTEROL [Concomitant]
     Active Substance: ALBUTEROL
  17. MAGNESIUM OXIDE [Concomitant]
     Active Substance: MAGNESIUM OXIDE
  18. DICLOFENAC [Concomitant]
     Active Substance: DICLOFENAC

REACTIONS (1)
  - Hospitalisation [Unknown]
